FAERS Safety Report 24401893 (Version 1)
Quarter: 2024Q4

REPORT INFORMATION
  Report Type: Spontaneous
  Country: US (occurrence: None)
  Receive Date: 20241007
  Receipt Date: 20241007
  Transmission Date: 20250115
  Serious: Yes (Hospitalization, Other)
  Sender: UNICHEM
  Company Number: US-Unichem Pharmaceuticals (USA) Inc-UCM202410-001238

PATIENT
  Age: 51 Year
  Sex: Female

DRUGS (1)
  1. ALLOPURINOL [Suspect]
     Active Substance: ALLOPURINOL
     Indication: Product used for unknown indication
     Dosage: UNKNOWN

REACTIONS (4)
  - Condition aggravated [Unknown]
  - Shock [Unknown]
  - Vocal cord paralysis [Unknown]
  - Drug reaction with eosinophilia and systemic symptoms [Unknown]
